FAERS Safety Report 5887118-1 (Version None)
Quarter: 2008Q3

REPORT INFORMATION
  Report Type: 
  Country: None (occurrence: None)
  Receive Date: 20080917
  Receipt Date: 20080908
  Transmission Date: 20090109
  Serious: Yes (Death, Other)
  Sender: FDA-Public Use
  Company Number: NO-PFIZER INC-2008074967

PATIENT
  Sex: Female

DRUGS (9)
  1. SOLU-MEDROL [Suspect]
     Indication: CASTLEMAN'S DISEASE
     Route: 042
     Dates: start: 20080717
  2. MABTHERA [Interacting]
     Indication: CASTLEMAN'S DISEASE
     Route: 042
     Dates: start: 20080717
  3. IRBESARTAN [Concomitant]
  4. DESLORATADINE [Concomitant]
  5. METFORMIN HCL [Concomitant]
  6. NORVASC [Concomitant]
  7. LANTUS [Concomitant]
  8. NOVORAPID [Concomitant]
     Dosage: DAILY DOSE:34I.U.-FREQ:6+6+16+6 IU/DAY
  9. ENALAPRIL MALEATE AND HYDROCHLOROTHIAZIDE [Concomitant]

REACTIONS (3)
  - CARDIAC ARREST [None]
  - DEATH [None]
  - DRUG INTERACTION [None]
